FAERS Safety Report 7985772-1 (Version None)
Quarter: 2011Q4

REPORT INFORMATION
  Report Type: 
  Country: None (occurrence: None)
  Receive Date: 20111007
  Receipt Date: 20110829
  Transmission Date: 20120403
  Serious: No
  Sender: FDA-Public Use
  Company Number: 2011HGS-002537

PATIENT
  Age: 51 Year
  Sex: Female
  Weight: 136.0791 kg

DRUGS (11)
  1. ACTOS [Concomitant]
  2. PREDNSONE (PREDNISONE) (PREDNISONE) [Concomitant]
  3. BENLYSTA [Suspect]
     Indication: SYSTEMIC LUPUS ERYTHEMATOSUS
     Dosage: 1 IN 14 D, INTRAVENOUS DRIP
     Route: 041
     Dates: start: 20110819, end: 20110819
  4. HYDROXYCHLOROQUINE (HYDROXYCHLOROQUINE) (HYDROXYCHLOROQUINE) [Concomitant]
  5. HYDROCODONE (HYDROCODONE) (HYDROCODONE) [Concomitant]
  6. LISINOPRIL [Concomitant]
  7. SPIRONOLACTONE [Concomitant]
  8. LEXAPRO (ESCITALOPRAM CALCIUM) (ESCITALOPRAM CALCIUM) [Concomitant]
  9. CRESTOR [Concomitant]
  10. LEVOXYL (LEVOTHYROXINE SODIUM) (LEVOTHYROXINE SODIUM) [Concomitant]
  11. AZATHIOPRINE (AZATHIOPRINE) (AZATHIOPRINE) [Concomitant]

REACTIONS (2)
  - JOINT SWELLING [None]
  - DISCOMFORT [None]
